FAERS Safety Report 5532766-1 (Version None)
Quarter: 2007Q4

REPORT INFORMATION
  Report Type: 
  Country: None (occurrence: None)
  Receive Date: 20071204
  Receipt Date: 20071127
  Transmission Date: 20080405
  Serious: Yes (Other)
  Sender: FDA-Public Use
  Company Number: PHEH2007US15239

PATIENT
  Sex: Female

DRUGS (7)
  1. METOPROLOL [Suspect]
  2. LASIX [Concomitant]
  3. COREG [Concomitant]
  4. FUROSEMIDE [Concomitant]
  5. LISINOPRIL [Concomitant]
  6. ASPIRIN [Concomitant]
  7. VIASPAN [Concomitant]

REACTIONS (1)
  - MYOCARDIAL INFARCTION [None]
